FAERS Safety Report 7949498-2 (Version None)
Quarter: 2011Q4

REPORT INFORMATION
  Report Type: 
  Country: None (occurrence: None)
  Receive Date: 20111130
  Receipt Date: 20111121
  Transmission Date: 20120403
  Serious: Yes (Hospitalization)
  Sender: FDA-Public Use
  Company Number: BR-B.I. PHARMACEUTICALS,INC./RIDGEFIELD-2011-BR-01263BR

PATIENT
  Sex: Male

DRUGS (1)
  1. PERSANTIN [Suspect]
     Indication: THROMBOSIS PROPHYLAXIS
     Dosage: 150 MG
     Route: 048
     Dates: start: 20060101

REACTIONS (4)
  - INTESTINAL OBSTRUCTION [None]
  - VENTRICLE RUPTURE [None]
  - BLADDER DISORDER [None]
  - MYOCARDIAL INFARCTION [None]
